FAERS Safety Report 4742095-1 (Version None)
Quarter: 2005Q3

REPORT INFORMATION
  Report Type: 
  Country: None (occurrence: None)
  Receive Date: 20050808
  Receipt Date: 20050722
  Transmission Date: 20060218
  Serious: Yes (Death, Other)
  Sender: FDA-Public Use
  Company Number: 2005-01627

PATIENT

DRUGS (4)
  1. INTEGRILIN [Suspect]
     Indication: CORONARY ANGIOPLASTY
  2. ASPIRIN [Concomitant]
  3. CLOPIDOGREL BISULFATE [Concomitant]
  4. ENOXAPARIN SODIUM [Concomitant]

REACTIONS (3)
  - BACK PAIN [None]
  - QUADRIPLEGIA [None]
  - SPINAL CORD HAEMORRHAGE [None]
